FAERS Safety Report 5036454-X (Version None)
Quarter: 2006Q2

REPORT INFORMATION
  Report Type: 
  Country: None (occurrence: None)
  Receive Date: 20060623
  Receipt Date: 20060619
  Transmission Date: 20061013
  Serious: Yes (Hospitalization, Other)
  Sender: FDA-Public Use
  Company Number: HQWYE292320JUN06

PATIENT
  Age: 7 Year
  Sex: Male

DRUGS (2)
  1. ADVIL [Suspect]
     Route: 048
     Dates: start: 20060401, end: 20060422
  2. ACETAMINOPHEN [Suspect]
     Route: 048
     Dates: start: 20060401, end: 20060422

REACTIONS (6)
  - CYTOMEGALOVIRUS ANTIBODY POSITIVE [None]
  - ERYTHEMA MULTIFORME [None]
  - FACE OEDEMA [None]
  - GINGIVAL EROSION [None]
  - ORAL MUCOSA EROSION [None]
  - STOMATITIS [None]
